FAERS Safety Report 8969151 (Version 2)
Quarter: 2013Q1

REPORT INFORMATION
  Report Type: Spontaneous
  Country: AR (occurrence: AR)
  Receive Date: 20121218
  Receipt Date: 20130128
  Transmission Date: 20140127
  Serious: Yes (Other)
  Sender: FDA-Public Use
  Company Number: AR-AMGEN-ARGSP2012080624

PATIENT
  Age: 61 Year
  Sex: Female

DRUGS (1)
  1. ENBREL [Suspect]
     Indication: RHEUMATOID ARTHRITIS
     Dosage: 50 MG, WEEKLY
     Route: 058
     Dates: start: 20030408, end: 201212

REACTIONS (4)
  - Abasia [Recovering/Resolving]
  - Pain in extremity [Recovering/Resolving]
  - Drug ineffective [Not Recovered/Not Resolved]
  - Nervousness [Unknown]
